FAERS Safety Report 13872603 (Version 4)
Quarter: 2018Q2

REPORT INFORMATION
  Report Type: Spontaneous
  Country: US (occurrence: US)
  Receive Date: 20170816
  Receipt Date: 20180606
  Transmission Date: 20180711
  Serious: Yes (Other)
  Sender: FDA-Public Use
  Company Number: US-PFIZER INC-2017350812

PATIENT
  Age: 50 Year
  Sex: Female
  Weight: 181.4 kg

DRUGS (2)
  1. EFFEXOR XR [Suspect]
     Active Substance: VENLAFAXINE HYDROCHLORIDE
     Indication: ANXIETY
     Dosage: 150 MG, 2X/DAY
     Route: 048
  2. EFFEXOR XR [Suspect]
     Active Substance: VENLAFAXINE HYDROCHLORIDE
     Indication: DEPRESSION
     Dosage: 150 MG, UNK
     Route: 048

REACTIONS (12)
  - Eyelid margin crusting [Unknown]
  - Dry eye [Unknown]
  - Overdose [Unknown]
  - Eye disorder [Unknown]
  - Blister [Unknown]
  - Lacrimation increased [Unknown]
  - Body height decreased [Unknown]
  - Myopia [Unknown]
  - Drug ineffective [Unknown]
  - Visual impairment [Not Recovered/Not Resolved]
  - Eyelid rash [Not Recovered/Not Resolved]
  - Cataract [Unknown]

NARRATIVE: CASE EVENT DATE: 201608
